FAERS Safety Report 25981084 (Version 1)
Quarter: 2025Q4

REPORT INFORMATION
  Report Type: Spontaneous
  Country: US (occurrence: None)
  Receive Date: 20251030
  Receipt Date: 20251030
  Transmission Date: 20260118
  Serious: Yes (Disabling)
  Sender: FDA-CTU
  Company Number: None

PATIENT
  Age: 19 Year
  Sex: Female
  Weight: 81 kg

DRUGS (1)
  1. VRAYLAR [Suspect]
     Active Substance: CARIPRAZINE
     Dosage: FREQUENCY : DAILY;?
     Route: 048

REACTIONS (6)
  - Tongue paralysis [None]
  - Discomfort [None]
  - Stomatitis [None]
  - Rash papular [None]
  - Rash erythematous [None]
  - Papule [None]

NARRATIVE: CASE EVENT DATE: 20251028
